FAERS Safety Report 10576758 (Version 4)
Quarter: 2015Q2

REPORT INFORMATION
  Report Type: Spontaneous
  Country: US (occurrence: US)
  Receive Date: 20141111
  Receipt Date: 20150508
  Transmission Date: 20150821
  Serious: Yes (Death, Other)
  Sender: FDA-Public Use
  Company Number: US-JNJFOC-20141105887

PATIENT
  Age: 33 Year
  Sex: Male
  Weight: 86.18 kg

DRUGS (2)
  1. REMICADE [Suspect]
     Active Substance: INFLIXIMAB
     Indication: CROHN^S DISEASE
     Route: 042
     Dates: start: 2006
  2. 6-MP [Concomitant]
     Active Substance: MERCAPTOPURINE
     Indication: CROHN^S DISEASE
     Route: 065
     Dates: start: 2006

REACTIONS (2)
  - Hepatic cancer [Fatal]
  - Colon cancer metastatic [Fatal]

NARRATIVE: CASE EVENT DATE: 20140904
